FAERS Safety Report 5484987-4 (Version None)
Quarter: 2007Q3

REPORT INFORMATION
  Report Type: 
  Country: None (occurrence: None)
  Receive Date: 20070927
  Receipt Date: 20070917
  Transmission Date: 20080115
  Serious: Yes (Other)
  Sender: FDA-Public Use
  Company Number: AEUSA200700113

PATIENT
  Age: 40 Year
  Sex: Male
  Weight: 104.3273 kg

DRUGS (7)
  1. GAMUNEX [Suspect]
     Indication: PROGRESSIVE MULTIPLE SCLEROSIS
     Dosage: IV
     Route: 042
     Dates: start: 20070401, end: 20070401
  2. COPAXONE [Concomitant]
  3. NEURONTIN [Concomitant]
  4. BACLOFEN [Concomitant]
  5. OMACOR [Concomitant]
  6. PROZAC [Concomitant]
  7. MARIJUANA [Concomitant]

REACTIONS (3)
  - DEEP VEIN THROMBOSIS [None]
  - INFUSION SITE PAIN [None]
  - THROMBOPHLEBITIS SUPERFICIAL [None]
